FAERS Safety Report 17155152 (Version 1)
Quarter: 2019Q4

REPORT INFORMATION
  Report Type: Spontaneous
  Country: US (occurrence: US)
  Receive Date: 20191214
  Receipt Date: 20191214
  Transmission Date: 20200122
  Serious: No
  Sender: FDA-Public Use
  Company Number: NVSC2019US022841

PATIENT
  Age: 30 Year
  Sex: Male

DRUGS (5)
  1. EZETIMIBE. [Suspect]
     Active Substance: EZETIMIBE
     Indication: TYPE IIA HYPERLIPIDAEMIA
     Dosage: 10 MG, QD
     Route: 048
  2. ROSUVASTATIN. [Suspect]
     Active Substance: ROSUVASTATIN
     Indication: TYPE IIA HYPERLIPIDAEMIA
     Dosage: 40 MG, QD
     Route: 048
  3. EVOLOCUMAB [Suspect]
     Active Substance: EVOLOCUMAB
     Indication: TYPE IIA HYPERLIPIDAEMIA
     Dosage: 140 MG/DL, Q2W
     Route: 058
  4. COLESEVELAM [Suspect]
     Active Substance: COLESEVELAM
     Indication: TYPE IIA HYPERLIPIDAEMIA
     Dosage: 3.75 G, QD
     Route: 048
  5. NIACIN. [Suspect]
     Active Substance: NIACIN
     Indication: TYPE IIA HYPERLIPIDAEMIA
     Dosage: 1 G, QD
     Route: 048

REACTIONS (1)
  - Drug ineffective [Unknown]
